FAERS Safety Report 4636288-1 (Version None)
Quarter: 2005Q2

REPORT INFORMATION
  Report Type: 
  Country: None (occurrence: None)
  Receive Date: 20050415
  Receipt Date: 20040624
  Transmission Date: 20051028
  Serious: No
  Sender: FDA-Public Use
  Company Number: US-BRISTOL-MYERS SQUIBB COMPANY-12625117

PATIENT
  Sex: Female

DRUGS (5)
  1. CARBOPLATIN [Suspect]
     Indication: BREAST CANCER
     Route: 042
  2. TAXOL [Concomitant]
  3. PEPCID [Concomitant]
  4. DECADRON [Concomitant]
  5. TAGAMET [Concomitant]

REACTIONS (1)
  - RASH [None]
